FAERS Safety Report 7837075-3 (Version None)
Quarter: 2011Q4

REPORT INFORMATION
  Report Type: 
  Country: None (occurrence: None)
  Receive Date: 20111024
  Receipt Date: 20110228
  Transmission Date: 20120403
  Serious: No
  Sender: FDA-Public Use
  Company Number: US-ABBOTT-11P-163-0708326-00

PATIENT
  Sex: Female
  Weight: 129.84 kg

DRUGS (4)
  1. LUPRON DEPOT [Suspect]
     Indication: ENDOMETRIOSIS
     Dates: start: 20110109
  2. VOLTAREN [Concomitant]
     Indication: JOINT INJURY
     Dates: start: 20110201
  3. ALEVE [Concomitant]
     Indication: ABDOMINAL PAIN LOWER
     Dates: start: 20110201
  4. TRIAMCINOLONE [Concomitant]
     Indication: RASH
     Dates: start: 20110201

REACTIONS (4)
  - ABDOMINAL PAIN LOWER [None]
  - DRY SKIN [None]
  - RASH [None]
  - JOINT INJURY [None]
